FAERS Safety Report 16433456 (Version 1)
Quarter: 2019Q2

REPORT INFORMATION
  Report Type: Spontaneous
  Country: US (occurrence: US)
  Receive Date: 20190614
  Receipt Date: 20190614
  Transmission Date: 20190711
  Serious: No
  Sender: FDA-Public Use
  Company Number: US-JNJFOC-20150805311

PATIENT
  Sex: Male

DRUGS (13)
  1. RISPERDAL [Suspect]
     Active Substance: RISPERIDONE
     Indication: SLEEP DISORDER THERAPY
     Dosage: VARYING DOE OF 0.25MG TO 0.5MG
     Route: 048
     Dates: start: 20110119, end: 20140208
  2. RISPERDAL [Suspect]
     Active Substance: RISPERIDONE
     Indication: AGGRESSION
     Route: 048
     Dates: start: 20100212, end: 20100528
  3. RISPERDAL [Suspect]
     Active Substance: RISPERIDONE
     Indication: AFFECT LABILITY
     Route: 048
     Dates: start: 20100212, end: 20100528
  4. RISPERDAL [Suspect]
     Active Substance: RISPERIDONE
     Indication: AGGRESSION
     Route: 048
     Dates: start: 20101224, end: 20120618
  5. RISPERDAL [Suspect]
     Active Substance: RISPERIDONE
     Indication: IRRITABILITY
     Route: 048
     Dates: start: 20101224, end: 20120618
  6. RISPERDAL [Suspect]
     Active Substance: RISPERIDONE
     Indication: IRRITABILITY
     Route: 048
     Dates: start: 20100212, end: 20100528
  7. RISPERDAL [Suspect]
     Active Substance: RISPERIDONE
     Indication: AFFECT LABILITY
     Dosage: VARYING DOE OF 0.25MG TO 0.5MG
     Route: 048
     Dates: start: 20110119, end: 20140208
  8. RISPERDAL [Suspect]
     Active Substance: RISPERIDONE
     Indication: AFFECT LABILITY
     Route: 048
     Dates: start: 20101224, end: 20120618
  9. RISPERIDONE. [Suspect]
     Active Substance: RISPERIDONE
     Indication: PRODUCT USED FOR UNKNOWN INDICATION
     Route: 048
  10. RISPERDAL [Suspect]
     Active Substance: RISPERIDONE
     Indication: SLEEP DISORDER THERAPY
     Route: 048
     Dates: start: 20101224, end: 20120618
  11. RISPERDAL [Suspect]
     Active Substance: RISPERIDONE
     Indication: SLEEP DISORDER THERAPY
     Route: 048
     Dates: start: 20100212, end: 20100528
  12. RISPERDAL [Suspect]
     Active Substance: RISPERIDONE
     Indication: AGGRESSION
     Dosage: VARYING DOE OF 0.25MG TO 0.5MG
     Route: 048
     Dates: start: 20110119, end: 20140208
  13. RISPERDAL [Suspect]
     Active Substance: RISPERIDONE
     Indication: IRRITABILITY
     Dosage: VARYING DOE OF 0.25MG TO 0.5MG
     Route: 048
     Dates: start: 20110119, end: 20140208

REACTIONS (1)
  - Gynaecomastia [Unknown]

NARRATIVE: CASE EVENT DATE: 2010
